FAERS Safety Report 20007352 (Version 2)
Quarter: 2021Q4

REPORT INFORMATION
  Report Type: Spontaneous
  Country: US (occurrence: US)
  Receive Date: 20211028
  Receipt Date: 20211119
  Transmission Date: 20220303
  Serious: Yes (Hospitalization, Other)
  Sender: FDA-Public Use
  Company Number: US-DRREDDYS-SPO/USA/21/0143010

PATIENT
  Age: 73 Year
  Sex: Female

DRUGS (2)
  1. GEMCITABINE [Suspect]
     Active Substance: GEMCITABINE
     Indication: Pancreatic carcinoma metastatic
  2. GEMCITABINE [Suspect]
     Active Substance: GEMCITABINE

REACTIONS (4)
  - Respiratory acidosis [Recovering/Resolving]
  - Pleural effusion [Recovering/Resolving]
  - Pneumonitis [Recovering/Resolving]
  - Pulmonary toxicity [Recovering/Resolving]
